FAERS Safety Report 6739903-1 (Version None)
Quarter: 2010Q2

REPORT INFORMATION
  Report Type: 
  Country: None (occurrence: None)
  Receive Date: 20100525
  Receipt Date: 20100517
  Transmission Date: 20101027
  Serious: Yes (Other)
  Sender: FDA-Public Use
  Company Number: GB-PFIZER INC-2010054192

PATIENT
  Age: 31 Year
  Sex: Female
  Weight: 65 kg

DRUGS (1)
  1. CHAMPIX [Suspect]
     Indication: SMOKING CESSATION THERAPY
     Dosage: 1 MG, 2X/DAY
     Route: 048
     Dates: start: 20100220, end: 20100402

REACTIONS (5)
  - ABNORMAL DREAMS [None]
  - DEPRESSED MOOD [None]
  - EMOTIONAL DISORDER [None]
  - SLEEP DISORDER [None]
  - TEARFULNESS [None]
